FAERS Safety Report 9219617 (Version 1)
Quarter: 2013Q2

REPORT INFORMATION
  Report Type: Spontaneous
  Country: US (occurrence: None)
  Receive Date: 20130405
  Receipt Date: 20130405
  Transmission Date: 20140414
  Serious: Yes (Hospitalization)
  Sender: FDA-Public Use
  Company Number: KV201300056

PATIENT
  Age: 32 Year
  Sex: Female

DRUGS (3)
  1. MAKENA [Suspect]
     Dosage: ONCE WEEKLY
     Route: 030
     Dates: start: 20130314
  2. MAKENA [Suspect]
     Dosage: ONCE WEEKLY
     Route: 030
     Dates: start: 20130314
  3. PRENATAL VITAMINS?/01549301/ (ASCORBIC ACID, BIOTIN, MINERALS NOS, NICOTINIC ACID, RETINOL, TOCOPHEROL, VITAMIN B NOS, VITAMIN D NOS) [Concomitant]

REACTIONS (7)
  - Headache [None]
  - Visual impairment [None]
  - Blood pressure increased [None]
  - Injection site pain [None]
  - Twin pregnancy [None]
  - Off label use [None]
  - Maternal exposure during pregnancy [None]
